FAERS Safety Report 10258544 (Version 6)
Quarter: 2018Q4

REPORT INFORMATION
  Report Type: Report from Study
  Country: MY (occurrence: MY)
  Receive Date: 20140625
  Receipt Date: 20181119
  Transmission Date: 20190204
  Serious: Yes (Death, Hospitalization, Disabling)
  Sender: FDA-Public Use
  Company Number: PHHO2014MY008929

PATIENT
  Age: 53 Year
  Sex: Female

DRUGS (5)
  1. EXEMESTANE. [Suspect]
     Active Substance: EXEMESTANE
     Indication: BREAST CANCER METASTATIC
     Dosage: 25 MG, QD
     Route: 048
  2. EVEROLIMUS. [Suspect]
     Active Substance: EVEROLIMUS
     Indication: BREAST CANCER METASTATIC
     Dosage: 5 MG, QD
     Route: 048
     Dates: start: 20140306, end: 20140623
  3. THYMOL M/WASH [Concomitant]
     Indication: MUCOSAL INFLAMMATION
     Dosage: UNK
     Route: 065
     Dates: start: 20130325
  4. LORAZEPAM. [Concomitant]
     Active Substance: LORAZEPAM
     Indication: INSOMNIA
     Dosage: 1 MG, ON
     Route: 048
     Dates: start: 20140509
  5. PARACETAMOL [Concomitant]
     Active Substance: ACETAMINOPHEN
     Indication: MUCOSAL INFLAMMATION
     Dosage: 1 G, TID
     Route: 065
     Dates: start: 20140325

REACTIONS (3)
  - Lethargy [Recovered/Resolved]
  - Decreased appetite [Recovered/Resolved]
  - Metastases to lung [Fatal]

NARRATIVE: CASE EVENT DATE: 20140604
